FAERS Safety Report 23060317 (Version 3)
Quarter: 2024Q1

REPORT INFORMATION
  Report Type: Spontaneous
  Country: FR (occurrence: FR)
  Receive Date: 20231012
  Receipt Date: 20240123
  Transmission Date: 20240410
  Serious: Yes (Death, Other)
  Sender: FDA-Public Use
  Company Number: FR-AFSSAPS-DJ2023001094

PATIENT
  Age: 79 Year
  Sex: Female
  Weight: 79 kg

DRUGS (9)
  1. ONDANSETRON [Suspect]
     Active Substance: ONDANSETRON
     Indication: Prophylaxis of nausea and vomiting
     Dosage: 8 MILLIGRAM
     Route: 042
     Dates: start: 20230820, end: 20230827
  2. VENETOCLAX [Suspect]
     Active Substance: VENETOCLAX
     Indication: Acute myeloid leukaemia
     Dosage: 200 MILLIGRAM
     Dates: start: 20230823, end: 20230827
  3. VENETOCLAX [Suspect]
     Active Substance: VENETOCLAX
     Dosage: ORAL
     Dates: start: 20230827, end: 20230827
  4. VENETOCLAX [Suspect]
     Active Substance: VENETOCLAX
     Dosage: ORAL
     Dates: start: 20230825, end: 20230826
  5. VANCOMYCIN [Suspect]
     Active Substance: VANCOMYCIN
     Indication: Sepsis
     Dosage: 2.5 GRAM, QD
     Route: 042
     Dates: start: 20230820, end: 20230827
  6. SPIRAMYCIN [Suspect]
     Active Substance: SPIRAMYCIN
     Indication: Sepsis
     Dosage: UNK
     Route: 042
     Dates: start: 20230825, end: 20230828
  7. LEVOFLOXACIN [Suspect]
     Active Substance: LEVOFLOXACIN
     Indication: Sepsis
     Dosage: 500 MILLIGRAM
     Route: 048
     Dates: start: 20230820, end: 20230825
  8. VIDAZA [Suspect]
     Active Substance: AZACITIDINE
     Indication: Acute myeloid leukaemia
     Dosage: 140 MILLIGRAM
     Dates: start: 20230823, end: 20230827
  9. CASPOFUNGIN ACETATE [Suspect]
     Active Substance: CASPOFUNGIN ACETATE
     Indication: Systemic candida
     Dosage: UNK
     Route: 042
     Dates: start: 20230820, end: 20230827

REACTIONS (2)
  - Jaundice [Fatal]
  - Hyperbilirubinaemia [Fatal]

NARRATIVE: CASE EVENT DATE: 20230828
